FAERS Safety Report 18838095 (Version 3)
Quarter: 2023Q1

REPORT INFORMATION
  Report Type: Other
  Country: US (occurrence: None)
  Receive Date: 20210203
  Receipt Date: 20230112
  Transmission Date: 20230418
  Serious: Yes (Other)
  Sender: FDA-Public Use
  Company Number: US-ROCHE-2762334

PATIENT
  Age: 33 Year
  Sex: Female
  Weight: 104.42 kg

DRUGS (5)
  1. OCREVUS [Suspect]
     Active Substance: OCRELIZUMAB
     Indication: Relapsing multiple sclerosis
     Dosage: 300 MG ON DAY AND DAY 15 THEN 600 MG EVERY 6 MONTHS
     Route: 042
     Dates: start: 20201210, end: 20220125
  2. CELLCEPT [Suspect]
     Active Substance: MYCOPHENOLATE MOFETIL
     Indication: Multiple sclerosis
     Route: 048
     Dates: start: 2010, end: 2010
  3. BACLOFEN [Concomitant]
     Active Substance: BACLOFEN
     Indication: Muscle spasms
     Dosage: AT NIGHT ;THERAPY ONGOING STATUS: YES
     Route: 048
     Dates: start: 201101
  4. BACLOFEN [Concomitant]
     Active Substance: BACLOFEN
     Dosage: IN THE MORNING ;THERAPY ONGOING STATUS: YES
     Route: 048
     Dates: start: 201101
  5. LYRICA [Concomitant]
     Active Substance: PREGABALIN
     Indication: Multiple sclerosis
     Dosage: THERAPY ONGOING STATUS: YES
     Route: 048

REACTIONS (10)
  - Oropharyngeal pain [Recovered/Resolved]
  - H1N1 influenza [Recovered/Resolved]
  - Mixed connective tissue disease [Not Recovered/Not Resolved]
  - Off label use [Unknown]
  - Cough [Recovered/Resolved]
  - Nasal congestion [Recovered/Resolved]
  - Diarrhoea [Recovered/Resolved]
  - Maternal exposure before pregnancy [Unknown]
  - Benign hydatidiform mole [Recovered/Resolved]
  - Abortion spontaneous [Unknown]

NARRATIVE: CASE EVENT DATE: 20120801
